FAERS Safety Report 4903464-X (Version None)
Quarter: 2006Q1

REPORT INFORMATION
  Report Type: 
  Country: None (occurrence: None)
  Receive Date: 20060206
  Receipt Date: 20060206
  Transmission Date: 20060701
  Serious: No
  Sender: FDA-Public Use
  Company Number: None

PATIENT
  Age: 36 Year
  Sex: Female
  Weight: 70.3075 kg

DRUGS (2)
  1. LEVAQUIN [Suspect]
     Indication: SINUSITIS
     Dosage: 1 TABLET DAILY PO
     Route: 048
     Dates: start: 19980123, end: 19980123
  2. ANTACID TAB [Concomitant]

REACTIONS (6)
  - CONVULSION [None]
  - FEELING ABNORMAL [None]
  - INSOMNIA [None]
  - MOTOR DYSFUNCTION [None]
  - SPEECH DISORDER [None]
  - TREMOR [None]
